FAERS Safety Report 25036763 (Version 2)
Quarter: 2025Q1

REPORT INFORMATION
  Report Type: Spontaneous
  Country: US (occurrence: US)
  Receive Date: 20250304
  Receipt Date: 20250317
  Transmission Date: 20250408
  Serious: No
  Sender: BAYER HEALTHCARE PHARMACEUTICALS INC.
  Company Number: US-BAYER-2025A029853

PATIENT
  Age: 44 Year
  Sex: Female

DRUGS (2)
  1. MIRENA [Suspect]
     Active Substance: LEVONORGESTREL
     Indication: Intrauterine contraception
     Dosage: 20?G/DAY
     Route: 015
     Dates: start: 202305, end: 20240806
  2. ERIVEDGE [Concomitant]
     Active Substance: VISMODEGIB

REACTIONS (3)
  - Device dislocation [Recovered/Resolved]
  - Gastrooesophageal reflux disease [None]
  - Muscle spasms [None]
